FAERS Safety Report 15076737 (Version 2)
Quarter: 2019Q2

REPORT INFORMATION
  Report Type: Spontaneous
  Country: FR (occurrence: FR)
  Receive Date: 20180627
  Receipt Date: 20190621
  Transmission Date: 20190711
  Serious: Yes (Hospitalization, Other)
  Sender: FDA-Public Use
  Company Number: FR-009507513-1806FRA010512

PATIENT
  Age: 70 Year
  Sex: Female
  Weight: 72 kg

DRUGS (1)
  1. KEYTRUDA [Suspect]
     Active Substance: PEMBROLIZUMAB
     Indication: NEOPLASM MALIGNANT
     Dosage: 200 MG, UNK
     Route: 041
     Dates: start: 20180307, end: 20180328

REACTIONS (4)
  - Immune-mediated adverse reaction [Recovering/Resolving]
  - Proteinuria [Recovering/Resolving]
  - Acute kidney injury [Recovering/Resolving]
  - Nephropathy [Recovering/Resolving]

NARRATIVE: CASE EVENT DATE: 20180411
